FAERS Safety Report 19017960 (Version 1)
Quarter: 2021Q1

REPORT INFORMATION
  Report Type: Spontaneous
  Country: GB (occurrence: GB)
  Receive Date: 20210316
  Receipt Date: 20210316
  Transmission Date: 20210420
  Serious: Yes (Life-Threatening, Hospitalization, Other)
  Sender: FDA-Public Use
  Company Number: GB-ALLERGAN-2111360US

PATIENT
  Sex: Female

DRUGS (1)
  1. LEVONORGESTREL UNK [Suspect]
     Active Substance: LEVONORGESTREL
     Indication: CONTRACEPTION
     Dosage: UNK, SINGLE
     Route: 015

REACTIONS (5)
  - Ectopic pregnancy [Unknown]
  - Ruptured ectopic pregnancy [Recovered/Resolved]
  - Haemoperitoneum [Recovered/Resolved]
  - Shock haemorrhagic [Recovered/Resolved]
  - Drug ineffective [Unknown]
